FAERS Safety Report 7200499-1 (Version None)
Quarter: 2010Q4

REPORT INFORMATION
  Report Type: 
  Country: None (occurrence: None)
  Receive Date: 20101228
  Receipt Date: 20101222
  Transmission Date: 20110411
  Serious: Yes (Hospitalization, Other)
  Sender: FDA-Public Use
  Company Number: BE-PFIZER INC-2010139246

PATIENT
  Age: 61 Year
  Sex: Male
  Weight: 65 kg

DRUGS (5)
  1. ESTRACYT [Suspect]
     Indication: PROSTATE CANCER
     Dosage: 140 MG, 6X/DAY
     Route: 048
     Dates: start: 20100901, end: 20101022
  2. DURAGESIC-100 [Concomitant]
     Dosage: UNK
     Route: 062
     Dates: start: 20101001
  3. DICLOFENAC [Concomitant]
     Dosage: 75 MG, 2X/DAY
     Route: 048
     Dates: start: 20101001
  4. ZOLADEX [Concomitant]
     Dosage: 10.8 MG, 1X/DAY
     Route: 058
     Dates: start: 20080101
  5. ZOMETA [Concomitant]
     Dosage: UNK
     Route: 042
     Dates: start: 20100301

REACTIONS (1)
  - JAUNDICE [None]
